FAERS Safety Report 4577135-6 (Version None)
Quarter: 2005Q1

REPORT INFORMATION
  Report Type: 
  Country: None (occurrence: None)
  Receive Date: 20050210
  Receipt Date: 20050104
  Transmission Date: 20050727
  Serious: Yes (Hospitalization)
  Sender: FDA-Public Use
  Company Number: DE-ROCHE-391371

PATIENT
  Age: 59 Year
  Sex: Female

DRUGS (18)
  1. MYCOPHENOLATE MOFETIL [Suspect]
     Route: 065
     Dates: start: 20041208, end: 20041229
  2. MYCOPHENOLATE MOFETIL [Suspect]
     Route: 065
     Dates: start: 20050106, end: 20050112
  3. MYCOPHENOLATE MOFETIL [Suspect]
     Route: 065
     Dates: start: 20050113, end: 20050118
  4. PREDNISOLONE [Suspect]
     Route: 065
     Dates: start: 20041208, end: 20041212
  5. PREDNISOLONE [Suspect]
     Dosage: DOSE TAPERED ACCORDING TO LOCAL PROTOCOL
     Route: 065
     Dates: start: 20041213
  6. CYCLOSPORINE [Suspect]
     Dosage: DOSE ADJUSTED TO REACH PREDEFINED TARGET LEVELS.
     Route: 065
     Dates: start: 20041208, end: 20041211
  7. CYCLOSPORINE [Suspect]
     Dosage: DOSE ADJUSTED TO REACH PREDEFINED TARGET LEVELS.
     Route: 065
     Dates: start: 20041215
  8. METOPROLOL [Concomitant]
  9. URAPIDIL [Concomitant]
     Dates: start: 20041211, end: 20041211
  10. NORFLOXACIN [Concomitant]
     Dates: start: 20041111, end: 20041215
  11. BLOOD, PACKED RED CELLS [Concomitant]
     Dosage: DRUG: ERYTHROCYTE CONCENTRATE
     Dates: start: 20041211, end: 20041231
  12. NIFEDIPINE [Concomitant]
     Dates: start: 20041213, end: 20041213
  13. AMLODIPINE [Concomitant]
     Dates: start: 20041216
  14. CEFUROXIM [Concomitant]
     Route: 048
     Dates: start: 20041222
  15. CEFUROXIM [Concomitant]
     Route: 042
     Dates: start: 20041230, end: 20050103
  16. METRONIDAZOLE [Concomitant]
     Dates: start: 20041230, end: 20050103
  17. TAZOBAC [Concomitant]
     Dates: start: 20050103, end: 20050110
  18. ATORVASTATIN [Concomitant]
     Dates: start: 20050110

REACTIONS (8)
  - ANAEMIA POSTOPERATIVE [None]
  - BLOOD TRIGLYCERIDES INCREASED [None]
  - IMPAIRED HEALING [None]
  - PERITONITIS [None]
  - SEROMA [None]
  - ULTRASOUND ABDOMEN ABNORMAL [None]
  - URETERAL NECROSIS [None]
  - URINARY TRACT INFECTION [None]
